FAERS Safety Report 15673922 (Version 1)
Quarter: 2018Q4

REPORT INFORMATION
  Report Type: Spontaneous
  Country: NL (occurrence: NL)
  Receive Date: 20181130
  Receipt Date: 20181130
  Transmission Date: 20190205
  Serious: Yes (Life-Threatening, Hospitalization)
  Sender: FDA-Public Use
  Company Number: NL-TEVA-2018-NL-979498

PATIENT
  Age: 82 Year
  Sex: Female
  Weight: 99 kg

DRUGS (15)
  1. CODEINEFOSFAAT 10MG [Concomitant]
  2. ACENOCOUMAROL [Concomitant]
     Active Substance: ACENOCOUMAROL
     Route: 065
  3. NEDIOS 250MG [Concomitant]
     Dosage: 250 MILLIGRAM DAILY; 1DD1
  4. AZITROMYCINE TABLET, 500 MG (MILLIGRAM) [Suspect]
     Active Substance: AZITHROMYCIN
     Indication: BRONCHITIS
     Dosage: 500 MILLIGRAM DAILY;
     Dates: start: 20171213
  5. KOELZALF FNA [Concomitant]
     Dosage: 1 DOSAGE FORMS DAILY; 1DD
     Route: 065
  6. PRAVASTATINE 40MG [Concomitant]
     Dosage: 40 MILLIGRAM DAILY;
     Route: 065
  7. BUMETANIDE 1MG [Concomitant]
     Active Substance: BUMETANIDE
     Dosage: 1 MILLIGRAM DAILY; 1DD1
     Route: 065
  8. CALCI CHEW D3 1G/800 [Concomitant]
     Dosage: 1 DOSAGE FORMS DAILY; 1DD1
     Route: 065
  9. NEBIVOLOL 2,5MG [Concomitant]
     Dosage: 1 MILLIGRAM DAILY; 1DD0,5 TABLET
  10. ISOSORBIDEDINITRAAT RETARD 20MG [Concomitant]
  11. DERMOVATE CREME [Concomitant]
     Dosage: 1 DOSAGE FORMS DAILY; 1DD
     Route: 065
  12. PREDNISOLON 5MG [Concomitant]
     Dosage: 2 MILLIGRAM DAILY;
  13. SALBUTAMOL AEROSOL, 100 ?G/DOSIS (MICROGRAM PER DOSIS) [Suspect]
     Active Substance: ALBUTEROL
     Indication: BRONCHITIS
     Dosage: 3X PER DAG 1 INHALATIE
     Route: 065
     Dates: start: 20171213, end: 20171213
  14. IRBESARTAN 150MG [Concomitant]
     Active Substance: IRBESARTAN
     Dosage: 150 MILLIGRAM DAILY;
  15. CARBAMAZEPINE 100MG [Concomitant]
     Dosage: 100 MILLIGRAM DAILY; 1DD1

REACTIONS (3)
  - Condition aggravated [Recovered/Resolved]
  - Angina pectoris [Recovered/Resolved]
  - Cardiac failure [Recovered/Resolved]

NARRATIVE: CASE EVENT DATE: 20171213
